FAERS Safety Report 10884126 (Version 1)
Quarter: 2015Q1

REPORT INFORMATION
  Report Type: Spontaneous
  Country: AT (occurrence: None)
  Receive Date: 20150227
  Receipt Date: 20150227
  Transmission Date: 20150721
  Serious: Yes (Death)
  Sender: FDA-Public Use
  Company Number: FK201500861

PATIENT
  Age: 65 Year
  Sex: Male

DRUGS (4)
  1. ENOXAPARIN (ENOXAPARIN) [Suspect]
     Active Substance: ENOXAPARIN
     Indication: PRODUCT USED FOR UNKNOWN INDICATION
  2. INSULIN (INSULIN) [Concomitant]
     Active Substance: INSULIN NOS
  3. HEPARIN SODIUM (MANUFACTURER UNKNOWN) (HEPARIN SODIUM) (HEPARIN SODIUM) [Suspect]
     Active Substance: HEPARIN SODIUM
     Indication: ANTICOAGULANT THERAPY
  4. PROTAMINE SULFATE (MANUFACTURER UNKNOWN) (PROTAMINE SULFATE) (PROTAMINE SULFATE) [Suspect]
     Active Substance: PROTAMINE SULFATE
     Indication: PROCOAGULANT THERAPY

REACTIONS (2)
  - Thrombosis [None]
  - Heparin-induced thrombocytopenia [None]
